FAERS Safety Report 10507520 (Version 2)
Quarter: 2014Q4

REPORT INFORMATION
  Report Type: Spontaneous
  Country: TW (occurrence: TW)
  Receive Date: 20141009
  Receipt Date: 20141204
  Transmission Date: 20150528
  Serious: Yes (Hospitalization, Other)
  Sender: FDA-Public Use
  Company Number: TW-ABBVIE-14K-153-1291571-00

PATIENT
  Age: 39 Year
  Sex: Female

DRUGS (2)
  1. CELECOXIB. [Concomitant]
     Active Substance: CELECOXIB
     Indication: PRODUCT USED FOR UNKNOWN INDICATION
     Route: 048
     Dates: start: 20140930
  2. HUMIRA [Suspect]
     Active Substance: ADALIMUMAB
     Indication: RHEUMATOID ARTHRITIS
     Route: 058
     Dates: start: 20140221

REACTIONS (8)
  - Haemoglobin decreased [Unknown]
  - Chills [Unknown]
  - Metastases to lung [Unknown]
  - Pneumonia [Not Recovered/Not Resolved]
  - Cardiomegaly [Unknown]
  - Blood creatinine decreased [Unknown]
  - Protein total decreased [Unknown]
  - Dysphonia [Not Recovered/Not Resolved]

NARRATIVE: CASE EVENT DATE: 201409
